FAERS Safety Report 12777984 (Version 1)
Quarter: 2016Q3

REPORT INFORMATION
  Report Type: Spontaneous
  Country: US (occurrence: US)
  Receive Date: 20160924
  Receipt Date: 20160924
  Transmission Date: 20161109
  Serious: No
  Sender: FDA-Public Use
  Company Number: US-JAZZ-2016-US-010721

PATIENT
  Sex: Female

DRUGS (42)
  1. IBUPROFEN. [Concomitant]
     Active Substance: IBUPROFEN
  2. NALTREXONE HCL [Concomitant]
     Active Substance: NALTREXONE HYDROCHLORIDE
  3. CLONAZEPAM. [Concomitant]
     Active Substance: CLONAZEPAM
  4. BOTOX [Concomitant]
     Active Substance: ONABOTULINUMTOXINA
  5. ULTRAM [Concomitant]
     Active Substance: TRAMADOL HYDROCHLORIDE
  6. PERCOCET [Concomitant]
     Active Substance: ACETAMINOPHEN\OXYCODONE HYDROCHLORIDE
  7. TOPAMAX [Concomitant]
     Active Substance: TOPIRAMATE
  8. BUSPIRONE HCL [Concomitant]
     Active Substance: BUSPIRONE HYDROCHLORIDE
  9. TRAZODONE HYDROCHLORIDE. [Concomitant]
     Active Substance: TRAZODONE HYDROCHLORIDE
  10. XYREM [Suspect]
     Active Substance: SODIUM OXYBATE
     Indication: CHRONIC FATIGUE SYNDROME
     Dosage: 4.5 G, BID
     Route: 048
     Dates: start: 201005, end: 201109
  11. XYREM [Suspect]
     Active Substance: SODIUM OXYBATE
     Dosage: 6 G, FIRST DOSE
     Route: 048
     Dates: start: 201109, end: 201201
  12. CHERATUSSIN [Concomitant]
     Active Substance: AMMONIUM CHLORIDE\DEXTROMETHORPHAN\SODIUM CITRATE
  13. DILAUDID [Concomitant]
     Active Substance: HYDROMORPHONE HYDROCHLORIDE
  14. PROGESTERONE. [Concomitant]
     Active Substance: PROGESTERONE
  15. SKELAXIN [Concomitant]
     Active Substance: METAXALONE
  16. ZYRTEC [Concomitant]
     Active Substance: CETIRIZINE HYDROCHLORIDE
  17. VICODIN [Concomitant]
     Active Substance: ACETAMINOPHEN\HYDROCODONE BITARTRATE
  18. ROZEREM [Concomitant]
     Active Substance: RAMELTEON
  19. TYLENOL [Concomitant]
     Active Substance: ACETAMINOPHEN
  20. XYREM [Suspect]
     Active Substance: SODIUM OXYBATE
     Dosage: 4.5 G, BID
     Route: 048
     Dates: start: 201201
  21. ATIVAN [Concomitant]
     Active Substance: LORAZEPAM
  22. TRAMADOL HCL [Concomitant]
     Active Substance: TRAMADOL HYDROCHLORIDE
  23. ALPHA LIPOIC ACID [Concomitant]
     Active Substance: .ALPHA.-LIPOIC ACID
  24. CALCIUM CARBONATE. [Concomitant]
     Active Substance: CALCIUM CARBONATE
  25. COENZYME Q10 [Concomitant]
     Active Substance: UBIDECARENONE
  26. HYDROXYZINE HCL [Concomitant]
     Active Substance: HYDROXYZINE HYDROCHLORIDE
  27. ESTRADIOL. [Concomitant]
     Active Substance: ESTRADIOL
  28. SEROQUEL [Concomitant]
     Active Substance: QUETIAPINE FUMARATE
  29. IMITREX [Concomitant]
     Active Substance: SUMATRIPTAN SUCCINATE
  30. SONATA [Concomitant]
     Active Substance: ZALEPLON
  31. ZOLPIDEM [Concomitant]
     Active Substance: ZOLPIDEM\ZOLPIDEM TARTRATE
  32. FISH OIL CONCENTRATE [Concomitant]
  33. N ACETYL L CYSTEIN [Concomitant]
  34. TRAZODONE HYDROCHLORIDE. [Concomitant]
     Active Substance: TRAZODONE HYDROCHLORIDE
  35. GABAPENTIN. [Concomitant]
     Active Substance: GABAPENTIN
  36. XYREM [Suspect]
     Active Substance: SODIUM OXYBATE
     Dosage: 3 G, SECOND DOSE
     Route: 048
     Dates: start: 201109, end: 201201
  37. ROBAXIN [Concomitant]
     Active Substance: METHOCARBAMOL
  38. SENNA S [Concomitant]
     Active Substance: DOCUSATE SODIUM\SENNA LEAF
  39. VITAMIN D [Concomitant]
     Active Substance: CHOLECALCIFEROL
  40. CYMBALTA [Concomitant]
     Active Substance: DULOXETINE HYDROCHLORIDE
  41. LUNESTA [Concomitant]
     Active Substance: ESZOPICLONE
  42. DOXEPIN [Concomitant]
     Active Substance: DOXEPIN

REACTIONS (1)
  - Weight increased [Unknown]

NARRATIVE: CASE EVENT DATE: 2014
